FAERS Safety Report 8582174-4 (Version None)
Quarter: 2012Q3

REPORT INFORMATION
  Report Type: 
  Country: None (occurrence: None)
  Receive Date: 20120727
  Receipt Date: 20120718
  Transmission Date: 20120928
  Serious: Yes (Hospitalization)
  Sender: FDA-Public Use
  Company Number: DSA_58243_2012

PATIENT
  Sex: Male

DRUGS (5)
  1. WELLBUTRIN [Suspect]
     Indication: DEPRESSION
     Dosage: (150 MG ORAL) ; (300 MG QD ORAL)
     Route: 048
     Dates: start: 20120521, end: 20120627
  2. WELLBUTRIN [Suspect]
     Indication: DEPRESSION
     Dosage: (150 MG ORAL) ; (300 MG QD ORAL)
     Route: 048
     Dates: start: 20120514, end: 20120520
  3. LITHIUM (LITHIUM-LITHIUM SALT) [Suspect]
     Indication: BIPOLAR DISORDER
     Dosage: (900 MG ORAL)
     Route: 048
     Dates: start: 20120612, end: 20120627
  4. VALPROATE SODIUM [Concomitant]
  5. SEROQUEL [Concomitant]

REACTIONS (2)
  - VENOUS INSUFFICIENCY [None]
  - PERICARDIAL EFFUSION [None]
